FAERS Safety Report 6161888-X (Version None)
Quarter: 2009Q2

REPORT INFORMATION
  Report Type: 
  Country: None (occurrence: None)
  Receive Date: 20090421
  Receipt Date: 20090417
  Transmission Date: 20091009
  Serious: Yes (Other)
  Sender: FDA-Public Use
  Company Number: B0569098A

PATIENT
  Sex: Male

DRUGS (2)
  1. RELENZA [Suspect]
     Indication: INFLUENZA
     Dosage: 10MG TWICE PER DAY
     Route: 055
     Dates: start: 20090126, end: 20090130
  2. ANYRUME [Concomitant]
     Route: 054

REACTIONS (4)
  - ERYTHEMA [None]
  - RASH [None]
  - RHABDOMYOLYSIS [None]
  - TOXIC SKIN ERUPTION [None]
